FAERS Safety Report 15541440 (Version 1)
Quarter: 2018Q4

REPORT INFORMATION
  Report Type: Spontaneous
  Country: US (occurrence: US)
  Receive Date: 20181017
  Receipt Date: 20181017
  Transmission Date: 20190205
  Serious: Yes (Hospitalization)
  Sender: FDA-Public Use
  Company Number: None

PATIENT
  Age: 40 Year
  Sex: Female

DRUGS (20)
  1. FUROSEMIDE. [Concomitant]
     Active Substance: FUROSEMIDE
  2. HYDROXYCHLOROQUINE [Concomitant]
     Active Substance: HYDROXYCHLOROQUINE
  3. NORCO [Concomitant]
     Active Substance: ACETAMINOPHEN\HYDROCODONE BITARTRATE
  4. ALENDRONATE [Concomitant]
     Active Substance: ALENDRONATE SODIUM
  5. DICLOFENIC TOP GEL [Concomitant]
  6. LETAIRIS [Suspect]
     Active Substance: AMBRISENTAN
     Indication: PULMONARY ARTERIAL HYPERTENSION
     Route: 048
     Dates: start: 201808, end: 201809
  7. MIDODRINE [Concomitant]
     Active Substance: MIDODRINE
  8. TRAMADOL. [Concomitant]
     Active Substance: TRAMADOL
  9. TRIAMCINOLONE TOP CREAM [Concomitant]
  10. MIRALAX [Concomitant]
     Active Substance: POLYETHYLENE GLYCOL 3350
  11. VITAMIN D3 [Concomitant]
     Active Substance: CHOLECALCIFEROL
  12. FOLIC ACID. [Concomitant]
     Active Substance: FOLIC ACID
  13. METOLAZONE. [Concomitant]
     Active Substance: METOLAZONE
  14. PREDNISONE. [Concomitant]
     Active Substance: PREDNISONE
  15. SPIRONOLACTONE. [Concomitant]
     Active Substance: SPIRONOLACTONE
  16. POTASSIUM CHLORIDE. [Concomitant]
     Active Substance: POTASSIUM CHLORIDE
  17. SUCRALFATE. [Concomitant]
     Active Substance: SUCRALFATE
  18. SILDENAFIL. [Concomitant]
     Active Substance: SILDENAFIL
  19. FAMOTIDINE. [Concomitant]
     Active Substance: FAMOTIDINE
  20. FLOLAN [Concomitant]
     Active Substance: EPOPROSTENOL SODIUM

REACTIONS (2)
  - Fluid overload [None]
  - Drug intolerance [None]

NARRATIVE: CASE EVENT DATE: 20180911
